FAERS Safety Report 5924544-6 (Version None)
Quarter: 2008Q4

REPORT INFORMATION
  Report Type: 
  Country: None (occurrence: None)
  Receive Date: 20081020
  Receipt Date: 20081010
  Transmission Date: 20090506
  Serious: Yes (Other)
  Sender: FDA-Public Use
  Company Number: US-AMGEN-QUU312768

PATIENT
  Sex: Female

DRUGS (2)
  1. ENBREL [Suspect]
     Indication: RHEUMATOID ARTHRITIS
     Route: 058
     Dates: start: 20060301
  2. NEORAL [Concomitant]
     Route: 048

REACTIONS (8)
  - ABDOMINAL PAIN UPPER [None]
  - ARTHROPATHY [None]
  - BEHCET'S SYNDROME [None]
  - BLINDNESS [None]
  - DIZZINESS [None]
  - HEADACHE [None]
  - SKIN EXFOLIATION [None]
  - SKIN ULCER [None]
